FAERS Safety Report 5764845-8 (Version None)
Quarter: 2008Q2

REPORT INFORMATION
  Report Type: 
  Country: None (occurrence: None)
  Receive Date: 20080611
  Receipt Date: 20080605
  Transmission Date: 20081010
  Serious: Yes (Other)
  Sender: FDA-Public Use
  Company Number: US-TYCO HEALTHCARE/MALLINCKRODT-T200800995

PATIENT

DRUGS (6)
  1. OPTIMARK [Suspect]
     Dosage: UNK, SINGLE
     Dates: start: 20060313, end: 20060313
  2. OPTIMARK [Suspect]
     Dosage: UNK, SINGLE
     Dates: start: 20060319, end: 20060319
  3. OPTIMARK [Suspect]
     Dosage: UNK, SINGLE
     Dates: start: 20060325, end: 20060325
  4. OPTIMARK [Suspect]
     Dosage: UNK, SINGLE
     Dates: start: 20070518, end: 20070518
  5. MAGNEVIST [Suspect]
     Dosage: UNK, SINGLE
     Dates: start: 20060319, end: 20060319
  6. MAGNEVIST [Suspect]
     Dosage: UNK, SINGLE
     Dates: start: 20060325, end: 20060325

REACTIONS (1)
  - NEPHROGENIC SYSTEMIC FIBROSIS [None]
